FAERS Safety Report 17573183 (Version 1)
Quarter: 2020Q1

REPORT INFORMATION
  Report Type: Spontaneous
  Country: IT (occurrence: IT)
  Receive Date: 20200323
  Receipt Date: 20200323
  Transmission Date: 20200409
  Serious: Yes (Other)
  Sender: FDA-Public Use
  Company Number: IT-JNJFOC-20200315442

PATIENT
  Age: 45 Year
  Sex: Female
  Weight: 80 kg

DRUGS (2)
  1. RISPERDAL [Suspect]
     Active Substance: RISPERIDONE
     Indication: SCHIZOPHRENIA
     Route: 048
     Dates: start: 20181029
  2. OLANZAPINE TEVA [Suspect]
     Active Substance: OLANZAPINE
     Indication: SCHIZOPHRENIA
     Route: 048
     Dates: start: 20180806, end: 20181130

REACTIONS (12)
  - Menstrual disorder [Unknown]
  - Salivary hypersecretion [Unknown]
  - Muscle rigidity [Unknown]
  - Galactorrhoea [Unknown]
  - Nausea [Unknown]
  - Hyperprolactinaemia [Unknown]
  - Somnolence [Unknown]
  - Breast pain [Unknown]
  - Dry mouth [Unknown]
  - Arrhythmia [Unknown]
  - Hypercholesterolaemia [Unknown]
  - Tremor [Unknown]

NARRATIVE: CASE EVENT DATE: 20190424
